FAERS Safety Report 5641607-3 (Version None)
Quarter: 2008Q1

REPORT INFORMATION
  Report Type: 
  Country: None (occurrence: None)
  Receive Date: 20080227
  Receipt Date: 20071205
  Transmission Date: 20080703
  Serious: No
  Sender: FDA-Public Use
  Company Number: A0697442A

PATIENT
  Age: 70 Year
  Sex: Female

DRUGS (1)
  1. NICORETTE [Suspect]
     Dates: start: 20071130, end: 20071204

REACTIONS (2)
  - GLOSSODYNIA [None]
  - STOMATITIS [None]
